FAERS Safety Report 6310716-8 (Version None)
Quarter: 2009Q3

REPORT INFORMATION
  Report Type: 
  Country: None (occurrence: None)
  Receive Date: 20090811
  Receipt Date: 20080312
  Transmission Date: 20100115
  Serious: Yes (Hospitalization)
  Sender: FDA-Public Use
  Company Number: 2008US001106

PATIENT
  Age: 16 Year
  Sex: Male

DRUGS (6)
  1. AMBISOME [Suspect]
     Indication: FUNGAL INFECTION
     Dosage: 5 MG/KG,; 3 MG/KG,
  2. AMPHOTERICIN B [Suspect]
     Indication: DRUG USE FOR UNKNOWN INDICATION
     Dosage: 5 MG/KG, UID/QD,
  3. TEICOPLANIN [Concomitant]
  4. CEFTAZIDIM (CEFTAZIDIME) [Concomitant]
  5. VORICONAZOLE [Concomitant]
  6. BACTRIM [Concomitant]

REACTIONS (8)
  - DIARRHOEA [None]
  - HYPOKALAEMIA [None]
  - NAUSEA [None]
  - OVERDOSE [None]
  - PYREXIA [None]
  - RENAL FAILURE [None]
  - VOMITING [None]
  - WRONG DRUG ADMINISTERED [None]
